FAERS Safety Report 5672312-5 (Version None)
Quarter: 2008Q1

REPORT INFORMATION
  Report Type: 
  Country: None (occurrence: None)
  Receive Date: 20080317
  Receipt Date: 20080307
  Transmission Date: 20080703
  Serious: Yes (Hospitalization)
  Sender: FDA-Public Use
  Company Number: 163-21880-08030534

PATIENT
  Age: 70 Year
  Sex: Male

DRUGS (1)
  1. REVLIMID [Suspect]
     Indication: MULTIPLE MYELOMA
     Dosage: 15 MG, QD X 21 DAYS, ORAL
     Route: 048
     Dates: start: 20080213, end: 20080201

REACTIONS (4)
  - ELECTROLYTE IMBALANCE [None]
  - PNEUMONIA [None]
  - RENAL DISORDER [None]
  - THROMBOSIS [None]
